FAERS Safety Report 7434006-5 (Version None)
Quarter: 2011Q2

REPORT INFORMATION
  Report Type: 
  Country: None (occurrence: None)
  Receive Date: 20110425
  Receipt Date: 20081122
  Transmission Date: 20111010
  Serious: Yes (Death, Hospitalization, Other)
  Sender: FDA-Public Use
  Company Number: US-BAYER-200839335NA

PATIENT
  Sex: Male
  Weight: 90.703 kg

DRUGS (32)
  1. TRASYLOL [Suspect]
     Indication: CORONARY ARTERY BYPASS
     Dosage: LOADING DOSE (200 ML) PER ANESTHESIA;INFUSION50ML/HR
     Route: 042
     Dates: start: 20060227, end: 20060227
  2. ACETYLSALICYLIC ACID SRT [Concomitant]
     Dosage: 325 MG DAILY
     Route: 048
  3. INTEGRILIN [Concomitant]
     Dosage: IV DRIP
     Route: 042
     Dates: start: 20051221
  4. DIGOXIN [Concomitant]
     Dosage: 125 MCG
     Route: 048
  5. CAPTOPRIL [Concomitant]
     Dosage: LONG TERM
  6. BENICAR [Concomitant]
     Dosage: 40 MG/25 MG DAILY
     Route: 048
  7. PRIMACOR [Concomitant]
     Dosage: UNK
     Dates: start: 20060227
  8. MANNITOL [Concomitant]
     Dosage: 25 G, UNK
     Dates: start: 20060227
  9. GLYBURIDE [Concomitant]
     Dosage: 5 MG
     Route: 048
  10. RED BLOOD CELLS [Concomitant]
     Dosage: 1 UNIT
     Dates: start: 20060227
  11. TRASYLOL [Suspect]
     Indication: MITRAL VALVE REPAIR
     Dosage: 200ML CARDIOPULMONARY BYPASS PUMP PRIME
     Dates: start: 20060227, end: 20060227
  12. LIPITOR [Concomitant]
     Dosage: 20 - 80 MG DAILY
     Route: 048
     Dates: start: 20051221
  13. HEPARIN [Concomitant]
     Dosage: 10,000 UNITS CBP
     Dates: start: 20060227
  14. ISORBIDE [Concomitant]
     Dosage: 30 MG DAILY
     Route: 048
  15. ZESTRIL [Concomitant]
     Dosage: 4 - 40 MG DAILY
     Route: 048
  16. HEPARIN [Concomitant]
     Dosage: 81,000 UNITS
     Route: 042
     Dates: start: 20060227
  17. NITROGLYCERIN [Concomitant]
     Dosage: UNK
     Route: 042
     Dates: start: 20060227
  18. LOVENOX [Concomitant]
     Dosage: SUBCUTANEOUSLY
     Dates: start: 20051220
  19. THROMBIN LOCAL SOLUTION [Concomitant]
     Dosage: 20,000 UNITS
     Route: 061
     Dates: start: 20060227
  20. TRASYLOL [Suspect]
     Indication: TRICUSPID VALVE REPAIR
  21. TRASYLOL [Suspect]
     Indication: COX-MAZE PROCEDURE
  22. METFORMIN [Concomitant]
     Dosage: 1000 MG TWICE DAILY
     Route: 048
  23. CARDIZEM [Concomitant]
     Dosage: 25 MG BOLUS AND 5 MG/HOUR
     Route: 042
     Dates: start: 20051220, end: 20051223
  24. TENORMIN [Concomitant]
     Dosage: 50 MG
     Route: 048
  25. COUMADIN [Concomitant]
     Dosage: 5MG
     Route: 048
  26. ANCEF [Concomitant]
     Dosage: 6 GMS
     Route: 042
     Dates: start: 20060227
  27. INSULIN [Concomitant]
     Dosage: 8 UNITS/ HOUR
     Route: 042
     Dates: start: 20060227
  28. NITROGLYCERIN [Concomitant]
     Dosage: NITROPASTE
     Route: 061
     Dates: start: 20051220
  29. PLETAL [Concomitant]
     Dosage: 100 MG TWICE DAILY
     Route: 048
  30. AMIODARONE [Concomitant]
     Indication: VENTRICULAR FIBRILLATION
     Dosage: 150 MG
     Route: 042
     Dates: start: 20060227
  31. VANCOMYCIN [Concomitant]
  32. RESTORIL [Concomitant]
     Dosage: 50MG
     Route: 048

REACTIONS (13)
  - DEATH [None]
  - RENAL FAILURE [None]
  - RENAL INJURY [None]
  - INJURY [None]
  - ANHEDONIA [None]
  - STRESS [None]
  - FEAR [None]
  - MULTI-ORGAN FAILURE [None]
  - EMOTIONAL DISTRESS [None]
  - UNEVALUABLE EVENT [None]
  - ANXIETY [None]
  - RENAL IMPAIRMENT [None]
  - PAIN [None]
